FAERS Safety Report 9337299 (Version 5)
Quarter: 2013Q4

REPORT INFORMATION
  Report Type: Report from Study
  Country: BE (occurrence: BE)
  Receive Date: 20130607
  Receipt Date: 20131211
  Transmission Date: 20140711
  Serious: Yes (Hospitalization)
  Sender: FDA-Public Use
  Company Number: BE-CELGENEUS-013-C4047-13054115

PATIENT
  Age: 72 Year
  Sex: Male
  Weight: 64.4 kg

DRUGS (18)
  1. CC-4047 [Suspect]
     Indication: PLASMA CELL MYELOMA
     Dosage: 4 MILLIGRAM
     Route: 048
     Dates: start: 20130319, end: 20130408
  2. CC-4047 [Suspect]
     Dosage: 3 MILLIGRAM
     Route: 048
     Dates: start: 20130513, end: 20130528
  3. CC-4047 [Suspect]
     Dosage: 3 MILLIGRAM
     Route: 048
     Dates: start: 20130611, end: 20130625
  4. DEXAMETHASONE [Suspect]
     Indication: PLASMA CELL MYELOMA
     Dosage: 5.7143 MILLIGRAM
     Route: 065
     Dates: start: 20130319, end: 20130409
  5. DEXAMETHASONE [Suspect]
     Dosage: 5.7143 MILLIGRAM
     Route: 065
     Dates: start: 20130513, end: 20130528
  6. DEXAMETHASONE [Suspect]
     Dosage: 5.7143 MILLIGRAM
     Route: 065
     Dates: start: 20130611
  7. DEXAMETHASONE [Suspect]
     Route: 048
     Dates: start: 20091106, end: 20101112
  8. DEXAMETHASONE [Suspect]
     Route: 048
     Dates: start: 20091102, end: 20130206
  9. DARBEPOETIN ALFA [Concomitant]
     Indication: ANAEMIA
     Dosage: 300 MICROGRAM
     Route: 054
     Dates: start: 20121010
  10. ASA [Concomitant]
     Indication: HYPERTENSION
     Dosage: 80 MILLIGRAM
     Route: 048
  11. LEVOTHYROXINE [Concomitant]
     Indication: THYROIDECTOMY
     Dosage: .05 MILLIGRAM
     Route: 048
  12. ATORVASTATINE [Concomitant]
     Indication: HYPERLIPIDAEMIA
     Dosage: 20 MILLIGRAM
     Route: 048
  13. OMEPRAZOLE [Concomitant]
     Indication: PROPHYLAXIS AGAINST GASTROINTESTINAL ULCER
     Dosage: 20 MILLIGRAM
     Route: 048
  14. CETIRIZIN [Concomitant]
     Indication: HYPERSENSITIVITY
     Dosage: 10 MILLIGRAM
     Route: 048
     Dates: start: 20130320, end: 20130803
  15. NEULASTA [Concomitant]
     Indication: NEUTROPHIL COUNT DECREASED
     Dosage: 6 MILLIGRAM
     Route: 058
     Dates: start: 20130513, end: 20130513
  16. SYMPATHICOMIMETICUM/CORTICOSTEROIDS [Concomitant]
     Indication: RESPIRATORY TRACT INFECTION
     Route: 065
     Dates: start: 20130326
  17. SYMBICORT [Concomitant]
     Indication: RESPIRATORY TRACT INFECTION
     Route: 065
     Dates: start: 20130326
  18. GRANULOCYTE COLONY-STIMULATING FACTOR NOS [Concomitant]
     Indication: PRODUCT USED FOR UNKNOWN INDICATION
     Route: 065

REACTIONS (1)
  - Pancreatitis [Recovered/Resolved]
